FAERS Safety Report 13838288 (Version 2)
Quarter: 2017Q3

REPORT INFORMATION
  Report Type: Spontaneous
  Country: GB (occurrence: GB)
  Receive Date: 20170807
  Receipt Date: 20170807
  Transmission Date: 20171127
  Serious: Yes (Other)
  Sender: FDA-Public Use
  Company Number: GB-CIPLA LTD.-2017GB13420

PATIENT

DRUGS (12)
  1. HYDROCORTISONE. [Concomitant]
     Active Substance: HYDROCORTISONE
     Dosage: UNK, SUCK 4 TIMES/DAY
     Route: 065
     Dates: start: 20170419, end: 20170424
  2. SERTRALINE [Suspect]
     Active Substance: SERTRALINE HYDROCHLORIDE
     Dosage: UNK
     Route: 065
     Dates: start: 20170502
  3. SYNALAR [Concomitant]
     Active Substance: FLUOCINOLONE ACETONIDE
     Dosage: 1 DF, BID
     Route: 065
     Dates: start: 20170522, end: 20170529
  4. FUSIDIC ACID [Concomitant]
     Active Substance: FUSIDIC ACID
     Dosage: 1 GTT, BID
     Route: 065
     Dates: start: 20170522, end: 20170529
  5. ACICLOVIR [Concomitant]
     Active Substance: ACYCLOVIR
     Dosage: 1 DF, TID
     Route: 065
     Dates: start: 20170519
  6. CETIRIZINE [Concomitant]
     Active Substance: CETIRIZINE HYDROCHLORIDE
     Dosage: 1 DF, QD
     Route: 065
     Dates: start: 20170522, end: 20170621
  7. LEVOFLOXACIN. [Concomitant]
     Active Substance: LEVOFLOXACIN
     Dosage: 1 DF, 6 TIMES IN A DAY, FOR THE FIRST 48 HOURS AND THE...
     Route: 065
     Dates: start: 20170528, end: 20170604
  8. MOMETASONE [Concomitant]
     Active Substance: MOMETASONE
     Dosage: 1 DF, QD
     Route: 065
     Dates: start: 20170503, end: 20170531
  9. CORSODYL [Concomitant]
     Active Substance: CHLORHEXIDINE GLUCONATE
     Dosage: 1 DF, BID
     Route: 065
     Dates: start: 20170419, end: 20170429
  10. CROTAMITON [Concomitant]
     Active Substance: CROTAMITON
     Dosage: AS NECESSARY
     Route: 065
     Dates: start: 20170421, end: 20170505
  11. FEXOFENADINE [Concomitant]
     Active Substance: FEXOFENADINE\FEXOFENADINE HYDROCHLORIDE
     Dosage: 1 DF, QD
     Route: 065
     Dates: start: 20170419, end: 20170519
  12. PREDNISOLONE. [Concomitant]
     Active Substance: PREDNISOLONE
     Dosage: TAKE 6 A DAY (30MG) FOR 7 DAYS THEN 4 A DAY (20...
     Route: 065
     Dates: start: 20170421, end: 20170519

REACTIONS (1)
  - Erythema multiforme [Recovered/Resolved]

NARRATIVE: CASE EVENT DATE: 20170606
